FAERS Safety Report 15587494 (Version 1)
Quarter: 2018Q4

REPORT INFORMATION
  Report Type: Spontaneous
  Country: US (occurrence: US)
  Receive Date: 20181105
  Receipt Date: 20181105
  Transmission Date: 20190205
  Serious: Yes (Other)
  Sender: FDA-Public Use
  Company Number: US-TARO PHARMACEUTICALS USA.,INC-2018SUN00566

PATIENT
  Age: 26 Year
  Sex: Female

DRUGS (1)
  1. DESONIDE. [Suspect]
     Active Substance: DESONIDE
     Indication: DERMATITIS ATOPIC
     Dosage: UNK
     Route: 061

REACTIONS (4)
  - Skin plaque [Recovering/Resolving]
  - Erythema [Recovering/Resolving]
  - Steroid withdrawal syndrome [Recovering/Resolving]
  - Eczema [Recovering/Resolving]
